FAERS Safety Report 13561973 (Version 1)
Quarter: 2017Q2

REPORT INFORMATION
  Report Type: Report from Study
  Country: None (occurrence: AT)
  Receive Date: 20170518
  Receipt Date: 20170518
  Transmission Date: 20170830
  Serious: Yes (Hospitalization)
  Sender: FDA-Public Use
  Company Number: AT-ABBVIE-17K-009-1978382-00

PATIENT
  Sex: Male

DRUGS (1)
  1. DUODOPA [Suspect]
     Active Substance: CARBIDOPA\LEVODOPA
     Indication: PARKINSON^S DISEASE
     Dosage: MD 8ML, CRT 4.2 ML/H, ED 2.0 ML, 16H
     Route: 050
     Dates: start: 20160914

REACTIONS (2)
  - Orthostatic intolerance [Recovering/Resolving]
  - Delirium [Recovering/Resolving]
